FAERS Safety Report 5935249-X (Version None)
Quarter: 2008Q4

REPORT INFORMATION
  Report Type: 
  Country: None (occurrence: None)
  Receive Date: 20081028
  Receipt Date: 20081021
  Transmission Date: 20090506
  Serious: Yes (Other)
  Sender: FDA-Public Use
  Company Number: 2008BI028145

PATIENT
  Age: 49 Year
  Sex: Female
  Weight: 89 kg

DRUGS (2)
  1. TYSABRI [Suspect]
     Indication: RELAPSING-REMITTING MULTIPLE SCLEROSIS
     Dosage: 300 MG; QW; IV
     Route: 042
     Dates: start: 20081020
  2. CORTISONE ACETATE TAB [Concomitant]

REACTIONS (3)
  - FEAR [None]
  - HYPERTENSIVE CRISIS [None]
  - NERVOUSNESS [None]
